FAERS Safety Report 11300687 (Version 2)
Quarter: 2015Q3

REPORT INFORMATION
  Report Type: Spontaneous
  Country: US (occurrence: None)
  Receive Date: 20150722
  Receipt Date: 20150812
  Transmission Date: 20151125
  Serious: Yes (Hospitalization, Other)
  Sender: FDA-Public Use
  Company Number: ADR-2015-01363

PATIENT
  Age: 7 Year
  Sex: Female

DRUGS (2)
  1. LIORESAL [Suspect]
     Active Substance: BACLOFEN
     Indication: MUSCLE SPASTICITY
     Dosage: 100MCG/DAY
  2. BACLOFEN (ORAL) [Suspect]
     Active Substance: BACLOFEN

REACTIONS (3)
  - Catheter site infection [None]
  - Sepsis [None]
  - Staphylococcal infection [None]

NARRATIVE: CASE EVENT DATE: 20150701
